FAERS Safety Report 8407079-0 (Version None)
Quarter: 2012Q2

REPORT INFORMATION
  Report Type: 
  Country: None (occurrence: None)
  Receive Date: 20120604
  Receipt Date: 20120601
  Transmission Date: 20120825
  Serious: Yes (Hospitalization, Other)
  Sender: FDA-Public Use
  Company Number: US-PFIZER INC-2012067525

PATIENT
  Sex: Female
  Weight: 37.642 kg

DRUGS (30)
  1. SUTENT [Suspect]
     Indication: RENAL CANCER
     Dosage: 50 MG, DAILY
     Dates: start: 20120306
  2. METOPROLOL SUCCINATE [Concomitant]
     Dosage: 25 MG, 1X/DAY
     Route: 048
  3. METOPROLOL SUCCINATE [Concomitant]
     Dosage: 12.5 MG, 2X/DAY (12.5MG, BID)
  4. LIPITOR [Concomitant]
     Dosage: 40 MG, 1X/DAY, EVERY NIGHT
     Route: 048
  5. LIPITOR [Concomitant]
     Dosage: 20 MG, DAILY
  6. LEVOTHYROXINE SODIUM [Concomitant]
     Dosage: 25 UG, 1X/DAY (ON EMPTY STOMACH)
  7. NOVOLOG [Concomitant]
     Dosage: UP TO 20 UNITS, DAILY (IN DIVIDED DOSE AS DIRECTED)
     Route: 058
  8. ARANESP [Concomitant]
     Dosage: 100 UG/ML, WEEKLY
  9. LEVOTHYROXINE SODIUM [Concomitant]
     Dosage: UNK (50 UGM)
  10. LANTUS [Concomitant]
     Dosage: UNK
  11. GABAPENTIN [Concomitant]
     Dosage: 200 MG, 1X/DAY
     Route: 048
  12. GABAPENTIN [Concomitant]
     Dosage: 100 MG, 2 TABS BY MOUTH DAILY
  13. LEVOTHYROXINE SODIUM [Concomitant]
     Dosage: 75 UG, DAILY
  14. VITA-B [Concomitant]
     Dosage: UNK
  15. TRICOR [Concomitant]
     Dosage: 145 MG, 1X/DAY
     Route: 048
  16. SUTENT [Suspect]
     Indication: RENAL CELL CARCINOMA
     Dosage: 50 MG, 1X/DAY, 4 WEEKS ON /2 WEEKS OFF
     Route: 048
     Dates: start: 20120306, end: 20120312
  17. CALCITRIOL [Concomitant]
     Dosage: 0.25 UG, DAILY
  18. AMLODIPINE BESILATE [Concomitant]
     Dosage: 2.5 MG, 1X/DAY
     Route: 048
  19. LOPERAMIDE [Concomitant]
     Dosage: 25 MG, 1X/DAY, AFTER EACH LOOSE BM, UP TO 4 TABS PER DAY
  20. BUTRANS [Concomitant]
     Dosage: 10 MCG/HR PTWK, EVERY WEEK
  21. PROMETHAZINE [Concomitant]
     Indication: NAUSEA
     Dosage: 12.5 MG, AS NEEDED
  22. INSULIN ASPART [Concomitant]
     Dosage: UNK
  23. LANTUS [Concomitant]
     Dosage: 100 UNIT/ML, 4 UNITS IN AM
  24. INSULIN GLARGINE [Concomitant]
     Dosage: UNK
  25. VITAMIN D [Concomitant]
     Dosage: 1000 IU, DAILY
  26. ALPRAZOLAM [Concomitant]
     Dosage: 0.5 MG, AS NEEDED
  27. NOVOLOG [Concomitant]
     Dosage: UNK
  28. VITAMIN D [Concomitant]
     Dosage: 1 DF, 1X/DAY
     Route: 048
  29. STOOL SOFTENER [Concomitant]
     Dosage: UNK
  30. MS CONTIN [Concomitant]
     Dosage: 15 MG X R 12 H
     Route: 048

REACTIONS (29)
  - BLOOD GLUCOSE DECREASED [None]
  - NAUSEA [None]
  - SKIN BURNING SENSATION [None]
  - PAIN [None]
  - ABDOMINAL MASS [None]
  - ABDOMINAL PAIN [None]
  - DYSPNOEA EXERTIONAL [None]
  - FLANK PAIN [None]
  - DRY SKIN [None]
  - LEUKOPENIA [None]
  - WEIGHT DECREASED [None]
  - BLISTER [None]
  - DEPRESSION [None]
  - ANAEMIA [None]
  - LETHARGY [None]
  - ORAL PAIN [None]
  - SKIN EXFOLIATION [None]
  - ASTHENIA [None]
  - VOMITING [None]
  - GRAM STAIN [None]
  - VIRAL INFECTION [None]
  - DEHYDRATION [None]
  - DIARRHOEA [None]
  - FATIGUE [None]
  - BLOOD THYROID STIMULATING HORMONE INCREASED [None]
  - JOINT SWELLING [None]
  - HYPERTENSION [None]
  - URINE COLOUR ABNORMAL [None]
  - CONSTIPATION [None]
